FAERS Safety Report 22098770 (Version 1)
Quarter: 2023Q1

REPORT INFORMATION
  Report Type: Spontaneous
  Country: SE (occurrence: SE)
  Receive Date: 20230315
  Receipt Date: 20230315
  Transmission Date: 20230418
  Serious: Yes (Hospitalization)
  Sender: FDA-Public Use
  Company Number: None

PATIENT
  Sex: Female

DRUGS (4)
  1. MIRTAZAPINE [Suspect]
     Active Substance: MIRTAZAPINE
     Dosage: 1000 MG MIRTAZAPINE
     Route: 048
     Dates: start: 20180709, end: 20180709
  2. TRIMEPRAZINE [Suspect]
     Active Substance: TRIMEPRAZINE
     Dosage: UNCLEAR AMOUNT
     Route: 048
     Dates: start: 20180709, end: 20180709
  3. MELATONIN [Suspect]
     Active Substance: MELATONIN
     Dosage: UNCLEAR AMOUNT
     Route: 048
     Dates: start: 20180709, end: 20180709
  4. VENLAFAXINE [Suspect]
     Active Substance: VENLAFAXINE HYDROCHLORIDE
     Dosage: 150 MG X 500 ST VENLAFAXINE
     Route: 048
     Dates: start: 20180709, end: 20180709

REACTIONS (5)
  - Epilepsy [Unknown]
  - Suicide attempt [Unknown]
  - Hypoglycaemia [Unknown]
  - Depressed level of consciousness [Unknown]
  - Intentional overdose [Unknown]

NARRATIVE: CASE EVENT DATE: 20180709
